FAERS Safety Report 5896076-5 (Version None)
Quarter: 2008Q3

REPORT INFORMATION
  Report Type: 
  Country: None (occurrence: None)
  Receive Date: 20080924
  Receipt Date: 20080915
  Transmission Date: 20090109
  Serious: Yes (Other)
  Sender: FDA-Public Use
  Company Number: US-AMGEN-QUU305704

PATIENT
  Sex: Female
  Weight: 73.5 kg

DRUGS (6)
  1. ENBREL [Suspect]
     Indication: RHEUMATOID ARTHRITIS
     Route: 058
     Dates: start: 20060701, end: 20080819
  2. ARAVA [Suspect]
     Dates: start: 20080610, end: 20080630
  3. CARDIZEM [Concomitant]
  4. NEXIUM [Concomitant]
  5. ATIVAN [Concomitant]
  6. METHOTREXATE [Concomitant]
     Dates: start: 20050401, end: 20071101

REACTIONS (1)
  - AGRANULOCYTOSIS [None]
